FAERS Safety Report 4397712-5 (Version None)
Quarter: 2004Q3

REPORT INFORMATION
  Report Type: 
  Country: None (occurrence: None)
  Receive Date: 20040713
  Receipt Date: 20040701
  Transmission Date: 20050211
  Serious: Yes (Other)
  Sender: FDA-Public Use
  Company Number: US-JNJFOC-20031204591

PATIENT
  Age: 25 Year
  Sex: Female
  Weight: 64.8644 kg

DRUGS (3)
  1. ORTHO EVRA [Suspect]
     Indication: CONTRACEPTION
     Dosage: 1 DOSE (S), 3 IN 4 WEEK, TRANSDERMAL
     Route: 062
     Dates: start: 20030901
  2. PAXIL [Concomitant]
  3. VICODIN [Concomitant]

REACTIONS (3)
  - APPLICATION SITE PRURITUS [None]
  - PANCREATITIS ACUTE [None]
  - WEIGHT INCREASED [None]
